FAERS Safety Report 7773335-2 (Version None)
Quarter: 2011Q3

REPORT INFORMATION
  Report Type: 
  Country: None (occurrence: None)
  Receive Date: 20110922
  Receipt Date: 20110914
  Transmission Date: 20111222
  Serious: Yes (Other)
  Sender: FDA-Public Use
  Company Number: US-AMGEN-USASP2011047358

PATIENT
  Age: 64 Year
  Sex: Female

DRUGS (1)
  1. ENBREL [Suspect]
     Indication: PRODUCT USED FOR UNKNOWN INDICATION
     Dosage: 50 MG, QWK
     Dates: start: 20110324, end: 20110701

REACTIONS (5)
  - RESPIRATORY TRACT CONGESTION [None]
  - MASS [None]
  - GOUT [None]
  - SINUS CONGESTION [None]
  - INFECTION [None]
